APPROVED DRUG PRODUCT: GANIRELIX ACETATE
Active Ingredient: GANIRELIX ACETATE
Strength: 250MCG/0.5ML
Dosage Form/Route: INJECTABLE;INJECTION
Application: A214996 | Product #001 | TE Code: AP
Applicant: MEITHEAL PHARMACEUTICALS INC
Approved: Jun 6, 2022 | RLD: No | RS: No | Type: RX